FAERS Safety Report 10957212 (Version 1)
Quarter: 2015Q1

REPORT INFORMATION
  Report Type: Spontaneous
  Country: US (occurrence: US)
  Receive Date: 20150326
  Receipt Date: 20150326
  Transmission Date: 20150721
  Serious: Yes (Other)
  Sender: FDA-Public Use
  Company Number: US-SA-2015SA016413

PATIENT
  Age: 48 Year
  Sex: Female

DRUGS (2)
  1. AUBAGIO [Suspect]
     Active Substance: TERIFLUNOMIDE
     Indication: MULTIPLE SCLEROSIS
     Route: 048
     Dates: start: 201408
  2. AMPYRA [Concomitant]
     Active Substance: DALFAMPRIDINE
     Dosage: STRENGTH: 10 MG

REACTIONS (2)
  - Multiple sclerosis relapse [Unknown]
  - Depressed mood [Unknown]
